FAERS Safety Report 14193169 (Version 1)
Quarter: 2017Q4

REPORT INFORMATION
  Report Type: Spontaneous
  Country: US (occurrence: US)
  Receive Date: 20171115
  Receipt Date: 20171115
  Transmission Date: 20180321
  Serious: Yes (Hospitalization, Other)
  Sender: FDA-Public Use
  Company Number: US-PFIZER INC-2017486159

PATIENT
  Sex: Female
  Weight: 58 kg

DRUGS (5)
  1. METOPROLOL. [Concomitant]
     Active Substance: METOPROLOL
     Dosage: 25 MG OR 50 MG AT MOST, DAILY
  2. NORPACE [Suspect]
     Active Substance: DISOPYRAMIDE PHOSPHATE
     Indication: HYPERTROPHIC CARDIOMYOPATHY
     Dosage: 150 MG, UNK
     Dates: start: 201710
  3. METOPROLOL. [Concomitant]
     Active Substance: METOPROLOL
     Dosage: ON 200MG AT SOME TIME
  4. NORPACE [Suspect]
     Active Substance: DISOPYRAMIDE PHOSPHATE
     Indication: PRESYNCOPE
     Dosage: 150 MG, DAILY
     Route: 048
  5. FLORINEF ACETATE [Concomitant]
     Active Substance: FLUDROCORTISONE ACETATE
     Dosage: UNKNOWN

REACTIONS (12)
  - Fall [Not Recovered/Not Resolved]
  - Cardiac arrest [Unknown]
  - Condition aggravated [Not Recovered/Not Resolved]
  - Sciatica [Unknown]
  - Presyncope [Not Recovered/Not Resolved]
  - Rib fracture [Unknown]
  - Product use in unapproved indication [Unknown]
  - Syncope [Not Recovered/Not Resolved]
  - Injury [Unknown]
  - Perineal injury [Unknown]
  - Blood pressure decreased [Not Recovered/Not Resolved]
  - Joint range of motion decreased [Unknown]

NARRATIVE: CASE EVENT DATE: 2014
